FAERS Safety Report 18479679 (Version 1)
Quarter: 2020Q4

REPORT INFORMATION
  Report Type: Spontaneous
  Country: US (occurrence: US)
  Receive Date: 20201107
  Receipt Date: 20201107
  Transmission Date: 20210114
  Serious: Yes (Other)
  Sender: FDA-Public Use
  Company Number: None

PATIENT
  Age: 32 Year
  Sex: Male
  Weight: 49.95 kg

DRUGS (4)
  1. SINUS CONGESTION AND PAIN SEVERE [Suspect]
     Active Substance: ACETAMINOPHEN\GUAIFENESIN\PHENYLEPHRINE HYDROCHLORIDE
     Indication: COUGH
     Dosage: ?          QUANTITY:2 TABLET(S);?
     Route: 048
     Dates: start: 20201101, end: 20201106
  2. ADVIL [Concomitant]
     Active Substance: IBUPROFEN
  3. SINUS CONGESTION AND PAIN SEVERE [Suspect]
     Active Substance: ACETAMINOPHEN\GUAIFENESIN\PHENYLEPHRINE HYDROCHLORIDE
     Indication: HEADACHE
     Dosage: ?          QUANTITY:2 TABLET(S);?
     Route: 048
     Dates: start: 20201101, end: 20201106
  4. SINUS CONGESTION AND PAIN SEVERE [Suspect]
     Active Substance: ACETAMINOPHEN\GUAIFENESIN\PHENYLEPHRINE HYDROCHLORIDE
     Indication: SINUS DISORDER
     Dosage: ?          QUANTITY:2 TABLET(S);?
     Route: 048
     Dates: start: 20201101, end: 20201106

REACTIONS (4)
  - Erythema [None]
  - Pruritus [None]
  - Blister [None]
  - Pain of skin [None]

NARRATIVE: CASE EVENT DATE: 20201104
